FAERS Safety Report 24115954 (Version 1)
Quarter: 2024Q3

REPORT INFORMATION
  Report Type: Report from Study
  Country: CO (occurrence: CO)
  Receive Date: 20240722
  Receipt Date: 20240722
  Transmission Date: 20241017
  Serious: Yes (Other)
  Sender: ABBVIE
  Company Number: CO-ABBVIE-5845826

PATIENT
  Age: 56 Year
  Sex: Female
  Weight: 100 kg

DRUGS (6)
  1. SKYRIZI [Suspect]
     Active Substance: RISANKIZUMAB-RZAA
     Indication: Psoriasis
     Dosage: STRENGTH: 150 MG
     Route: 058
     Dates: start: 20220630, end: 20240601
  2. PYRIDOXINE HYDROCHLORIDE [Suspect]
     Active Substance: PYRIDOXINE HYDROCHLORIDE
     Indication: Tuberculosis
     Dosage: 500 MILLIGRAM
     Route: 048
     Dates: start: 202406
  3. IRBESARTAN [Concomitant]
     Active Substance: IRBESARTAN
     Indication: Hyperthyroidism
     Dosage: 100 MILLIGRAM
     Route: 048
  4. VITAMIN B6 [Concomitant]
     Active Substance: PYRIDOXINE HYDROCHLORIDE
     Indication: Product used for unknown indication
     Dosage: 1 UNKNOWN
     Route: 048
     Dates: start: 202406
  5. ISONIAZID [Suspect]
     Active Substance: ISONIAZID
     Indication: Tuberculosis
     Dosage: 300 MILLIGRAM
     Route: 048
     Dates: start: 202406
  6. LEVOTHYROXINE [Concomitant]
     Active Substance: LEVOTHYROXINE\LEVOTHYROXINE SODIUM
     Indication: Hyperthyroidism
     Dosage: 150 MG
     Route: 048

REACTIONS (6)
  - Tuberculosis [Not Recovered/Not Resolved]
  - Arthralgia [Unknown]
  - Stress [Unknown]
  - Paraesthesia [Unknown]
  - Pain in extremity [Unknown]
  - Muscle spasms [Unknown]

NARRATIVE: CASE EVENT DATE: 20240409
